FAERS Safety Report 5371868-X (Version None)
Quarter: 2007Q2

REPORT INFORMATION
  Report Type: 
  Country: None (occurrence: None)
  Receive Date: 20070627
  Receipt Date: 20070620
  Transmission Date: 20071010
  Serious: Yes (Hospitalization, Other)
  Sender: FDA-Public Use
  Company Number: US-JNJFOC-20061104530

PATIENT
  Sex: Female
  Weight: 68.95 kg

DRUGS (10)
  1. ORTHO EVRA [Suspect]
     Indication: CONTRACEPTION
     Route: 062
  2. VICODIN [Concomitant]
     Indication: MUSCULOSKELETAL CHEST PAIN
  3. PREDNISONE TAB [Concomitant]
     Indication: IDIOPATHIC PULMONARY FIBROSIS
  4. IRON SULFATETHIAMIN COMPOUND TAB [Concomitant]
  5. THORAZINE [Concomitant]
  6. PROZAC [Concomitant]
  7. SEROQUEL [Concomitant]
  8. SEROQUEL [Concomitant]
  9. TOPAMAX [Concomitant]
  10. COLACE [Concomitant]

REACTIONS (1)
  - PULMONARY EMBOLISM [None]
